FAERS Safety Report 8780594 (Version 7)
Quarter: 2013Q4

REPORT INFORMATION
  Report Type: Report from Study
  Country: DE (occurrence: DE)
  Receive Date: 20120913
  Receipt Date: 20131021
  Transmission Date: 20140711
  Serious: Yes (Death, Life-Threatening, Hospitalization, Other)
  Sender: FDA-Public Use
  Company Number: PHHY2012DE061954

PATIENT
  Age: 76 Year
  Sex: Male
  Weight: 67 kg

DRUGS (30)
  1. AMN107 [Suspect]
     Indication: CHRONIC MYELOID LEUKAEMIA
     Dosage: 800 MG, DAILY
     Route: 048
     Dates: start: 20111111, end: 20120714
  2. DIOVAN [Suspect]
     Dosage: 160 MG, DAILY
     Dates: start: 20120714
  3. DIOVAN [Suspect]
     Dosage: 25 MG, DAILY
  4. EBRANTIL [Suspect]
     Indication: HYPERTENSION
     Dosage: 180 MG, DAILY
     Route: 048
     Dates: start: 20120515, end: 20120714
  5. LYRICA [Suspect]
     Indication: PAIN
     Dosage: 150 MG DAILY
     Route: 048
     Dates: start: 20080410, end: 20120514
  6. BELOC ZOK [Concomitant]
     Indication: HYPERTENSION
     Dosage: 47.5 MG, DAILY
     Route: 048
     Dates: start: 20120721
  7. AQUAPHOR TABLET [Concomitant]
     Indication: RENAL FAILURE
     Dosage: 10 MG, DAILY
     Route: 048
     Dates: start: 20120714
  8. AQUAPHOR TABLET [Concomitant]
     Dosage: 20 MG, DAILY
  9. TILIDIN ^RATIOPHARM^ [Concomitant]
     Indication: PAIN
     Dosage: 50 MG
     Dates: start: 20120515
  10. SIMVASTATIN [Concomitant]
     Indication: METABOLIC DISORDER
     Dosage: 40 MG, DAILY
     Route: 048
     Dates: start: 20100902
  11. ASS [Concomitant]
     Indication: HYPERTENSION
     Dosage: 100 MG, DAILY
     Route: 048
     Dates: start: 20100902
  12. EXFORGE HCT [Concomitant]
     Indication: HYPERTENSION
     Dosage: 1 MG, DAILY
     Route: 048
  13. NEXIUM [Concomitant]
     Indication: OESOPHAGITIS
     Dosage: 20 MG, DAILY
     Route: 048
  14. MUSARIL [Concomitant]
     Dates: start: 20111116, end: 20111221
  15. PREDNISOLONE [Concomitant]
     Dosage: 5 MG, DAILY
     Dates: start: 20100517, end: 20120515
  16. PREDNISOLONE [Concomitant]
     Dosage: 5 MG, DAILY
     Dates: start: 20120727
  17. TOREM [Concomitant]
     Dosage: 10 MG
     Dates: start: 20080410, end: 20120727
  18. FURESIS COMP [Concomitant]
     Dosage: 125 MG
     Dates: start: 20120727
  19. CARMEN [Concomitant]
     Dosage: 10 MG
     Dates: start: 20120714
  20. CARMEN [Concomitant]
     Dosage: 20 MG, DAILY
  21. VALSARTAN [Concomitant]
     Dosage: 80 MG, DAILY
     Dates: start: 20111221
  22. VALSARTAN [Concomitant]
     Dosage: 160 MG DAILY
  23. CYNT [Concomitant]
     Dosage: 0.3 MG
     Dates: start: 20110714
  24. CYNT [Concomitant]
     Dosage: 0.03 MG, DAILY
  25. OMEPRAZOLE [Concomitant]
     Dosage: 20 MG
     Dates: start: 20061201
  26. NEBIVOLOL [Concomitant]
     Dosage: 5 MG, DAILY
     Dates: start: 20111221, end: 20120714
  27. BIFITERAL [Concomitant]
     Dates: start: 20120804
  28. AMLODIPINE [Concomitant]
     Dates: start: 20120213, end: 20120514
  29. SAROTEN [Concomitant]
     Dates: start: 20120213, end: 20120514
  30. URAPIDIL [Concomitant]
     Dosage: 180 MG, DAILY

REACTIONS (20)
  - Death [Fatal]
  - Disorientation [Not Recovered/Not Resolved]
  - Renal failure acute [Not Recovered/Not Resolved]
  - Urine output decreased [Unknown]
  - Bladder hypertrophy [Not Recovered/Not Resolved]
  - Bladder dysfunction [Recovered/Resolved]
  - General physical health deterioration [Recovered/Resolved]
  - Abdominal pain lower [Recovered/Resolved]
  - Renal failure chronic [Not Recovered/Not Resolved]
  - Transient ischaemic attack [Recovered/Resolved]
  - Speech disorder [Recovered/Resolved]
  - Hypertension [Recovered/Resolved]
  - Hyponatraemia [Recovered/Resolved]
  - Cardiac failure [Recovering/Resolving]
  - Pulmonary congestion [Recovered/Resolved]
  - Pleural effusion [Recovering/Resolving]
  - Ascites [Recovering/Resolving]
  - Inflammation [Recovered/Resolved]
  - Ventricular hypokinesia [Unknown]
  - Aortic valve sclerosis [Unknown]
